FAERS Safety Report 5075198-5 (Version None)
Quarter: 2006Q3

REPORT INFORMATION
  Report Type: 
  Country: None (occurrence: None)
  Receive Date: 20060809
  Receipt Date: 20060502
  Transmission Date: 20061208
  Serious: Yes (Hospitalization)
  Sender: FDA-Public Use
  Company Number: FR-BAYER-200610424BFR

PATIENT
  Age: 82 Year
  Sex: Female

DRUGS (5)
  1. CIFLOX [Suspect]
     Indication: UNEVALUABLE EVENT
     Dosage: TOTAL DAILY DOSE: 500 MG  UNIT DOSE: 500 MG
     Route: 048
     Dates: start: 20060106, end: 20060109
  2. BACTRIM [Suspect]
     Indication: UNEVALUABLE EVENT
     Route: 048
     Dates: start: 20060107, end: 20060109
  3. FONZYLANE [Suspect]
     Indication: UNEVALUABLE EVENT
     Dosage: TOTAL DAILY DOSE: 100 MG
     Route: 042
     Dates: start: 20060114, end: 20060115
  4. PYOSTACINE [Suspect]
     Indication: UNEVALUABLE EVENT
     Dosage: TOTAL DAILY DOSE: 2 G
     Route: 048
     Dates: start: 20060106, end: 20060107
  5. ASPIRIN [Suspect]
     Indication: UNEVALUABLE EVENT
     Route: 048
     Dates: start: 20060114, end: 20060130

REACTIONS (4)
  - ABDOMINAL PAIN [None]
  - ARTHRALGIA [None]
  - HENOCH-SCHONLEIN PURPURA [None]
  - SKIN LESION [None]
